FAERS Safety Report 5527740-5 (Version None)
Quarter: 2007Q4

REPORT INFORMATION
  Report Type: 
  Country: None (occurrence: None)
  Receive Date: 20071128
  Receipt Date: 20071119
  Transmission Date: 20080405
  Serious: Yes (Hospitalization)
  Sender: FDA-Public Use
  Company Number: US-ELI_LILLY_AND_COMPANY-US200710002565

PATIENT
  Age: 73 Year
  Sex: Male

DRUGS (13)
  1. BYETTA [Suspect]
     Dosage: UNK, UNKNOWN
     Dates: start: 20070801, end: 20070911
  2. LISINOPRIL [Concomitant]
     Dosage: 10 MG, DAILY (1/D)
  3. IMDUR [Concomitant]
     Dosage: 30 MG, DAILY (1/D)
  4. NEXIUM [Concomitant]
     Dosage: UNK, UNKNOWN
     Dates: end: 20070912
  5. ASPIRIN [Concomitant]
     Dosage: 81 MG, DAILY (1/D)
  6. COREG [Concomitant]
     Dosage: 12.5 MG, DAILY (1/D)
  7. PLAVIX [Concomitant]
     Dosage: 75 MG, DAILY (1/D)
  8. GLIPIZIDE [Concomitant]
     Dosage: 5 MG, DAILY (1/D)
  9. LASIX [Concomitant]
     Dosage: 20 MG, DAILY (1/D)
  10. LIPITOR [Concomitant]
     Dosage: 10 MG, DAILY (1/D)
     Dates: end: 20070912
  11. METFORMIN HCL [Concomitant]
     Dosage: 1500 MG, 2/D
  12. ZETIA [Concomitant]
     Indication: PROPHYLAXIS
     Dosage: UNK, UNKNOWN
  13. ZETIA [Concomitant]
     Dosage: UNK, UNKNOWN
     Dates: start: 20070101, end: 20070101

REACTIONS (4)
  - EJECTION FRACTION DECREASED [None]
  - ELECTROCARDIOGRAM ST SEGMENT DEPRESSION [None]
  - ELECTROCARDIOGRAM T WAVE INVERSION [None]
  - HEPATOTOXICITY [None]
